FAERS Safety Report 8963855 (Version 2)
Quarter: 2013Q1

REPORT INFORMATION
  Report Type: Spontaneous
  Country: GB (occurrence: GB)
  Receive Date: 20121213
  Receipt Date: 20130108
  Transmission Date: 20140127
  Serious: Yes (Other)
  Sender: FDA-Public Use
  Company Number: GB-TEVA-370566ISR

PATIENT
  Age: 29 Year
  Sex: Female

DRUGS (3)
  1. COPAXONE [Suspect]
     Dosage: DRUG DISCONTINUED BEFORE PREGNANCY AND RECENTLY STARTED COPAXONE AGAIN
     Route: 058
     Dates: start: 2006
  2. CARBAMAZEPINE [Concomitant]
  3. MARVELON [Concomitant]

REACTIONS (7)
  - Flushing [Recovered/Resolved]
  - Chest discomfort [Recovered/Resolved]
  - Vaginal haemorrhage [Recovered/Resolved]
  - Feeling hot [Unknown]
  - Erythema [Unknown]
  - Cardiac discomfort [Unknown]
  - Dyspnoea [Unknown]
